FAERS Safety Report 8794745 (Version 1)
Quarter: 2012Q4

REPORT INFORMATION
  Report Type: Report from Study
  Country: DE (occurrence: DE)
  Receive Date: 20120917
  Receipt Date: 20120917
  Transmission Date: 20130627
  Serious: Yes (Hospitalization)
  Sender: FDA-Public Use
  Company Number: DE-BAXTER-2012BAX016685

PATIENT
  Sex: Female

DRUGS (18)
  1. ENDOXAN 1G [Suspect]
     Indication: B-CELL LYMPHOMA
     Route: 042
     Dates: start: 20120426
  2. RITUXIMAB [Suspect]
     Indication: B-CELL LYMPHOMA
     Route: 042
     Dates: start: 20120425
  3. DOXORUBICIN [Suspect]
     Indication: B-CELL LYMPHOMA
     Route: 042
     Dates: start: 20120426
  4. VINCRISTINE [Suspect]
     Indication: B-CELL LYMPHOMA
     Route: 042
     Dates: start: 20120426
  5. PREDNISOLONE [Suspect]
     Indication: B-CELL LYMPHOMA
     Route: 065
     Dates: start: 20120426, end: 20120430
  6. PEGFILGRASTIM [Suspect]
     Indication: B-CELL LYMPHOMA
     Route: 058
     Dates: start: 20120429
  7. PEGFILGRASTIM [Suspect]
     Route: 058
     Dates: start: 20120517
  8. ENOXAPARIN SODIUM [Concomitant]
     Indication: ATRIAL FIBRILLATION
     Route: 058
     Dates: start: 20120412
  9. NEBIVOLOL [Concomitant]
     Indication: ATRIAL FIBRILLATION
     Route: 048
     Dates: start: 20120412
  10. LEVOTHYROXINE SODIUM [Concomitant]
     Indication: HYPOTHYROIDISM
     Route: 048
     Dates: start: 20120412
  11. SIMVASTATIN [Concomitant]
     Indication: CORONARY SCLEROSIS
     Route: 048
     Dates: start: 20120412
  12. TORASEMIDE [Concomitant]
     Indication: HYPERTENSION
     Route: 048
     Dates: start: 20120412
  13. ASPIRIN [Concomitant]
     Indication: CORONARY SCLEROSIS
     Route: 048
     Dates: start: 20120412
  14. TIOTROPIUM BROMIDE [Concomitant]
     Indication: COPD
     Route: 048
     Dates: start: 20120412
  15. RAMIPRIL [Concomitant]
     Indication: HYPERTENSION
     Route: 048
     Dates: start: 20120412
  16. SULFAMETHOXAZOLE W/TRIMETHOPRIM [Concomitant]
     Indication: PROPHYLAXIS
     Route: 051
     Dates: start: 20120412
  17. ACICLOVIR [Concomitant]
     Indication: PROPHYLAXIS
     Route: 051
     Dates: start: 20120412
  18. PANTOPRAZOL [Concomitant]
     Indication: GASTRIC ULCER PROPHYLAXIS
     Route: 051
     Dates: start: 20120412

REACTIONS (2)
  - Thrombocytopenia [Unknown]
  - Presyncope [Recovered/Resolved]
